FAERS Safety Report 9047056 (Version 1)
Quarter: 2013Q1

REPORT INFORMATION
  Report Type: Spontaneous
  Country: US (occurrence: US)
  Receive Date: 20130204
  Receipt Date: 20130204
  Transmission Date: 20140127
  Serious: Yes (Other)
  Sender: FDA-Public Use
  Company Number: US-BAYER-2013-012235

PATIENT
  Age: 22 Year
  Sex: Female
  Weight: 55 kg

DRUGS (4)
  1. BEYAZ [Suspect]
     Indication: CONTRACEPTION
  2. YAZ [Suspect]
  3. GIANVI [Suspect]
  4. KEFLEX [Concomitant]
     Dosage: 500 MG, UNK

REACTIONS (1)
  - Ovarian vein thrombosis [Recovered/Resolved]
